FAERS Safety Report 6741345-X (Version None)
Quarter: 2010Q2

REPORT INFORMATION
  Report Type: 
  Country: None (occurrence: None)
  Receive Date: 20100526
  Receipt Date: 20100518
  Transmission Date: 20101027
  Serious: Yes (Other)
  Sender: FDA-Public Use
  Company Number: CA-PFIZER INC-2010037780

PATIENT
  Age: 32 Year
  Sex: Female

DRUGS (3)
  1. CHAMPIX [Suspect]
     Indication: SMOKING CESSATION THERAPY
     Dosage: 0.5 MG, UNK
     Dates: start: 20100112, end: 20100118
  2. CHAMPIX [Interacting]
     Dosage: 1 MG, 2X/DAY
     Dates: start: 20100119
  3. ALCOHOL [Interacting]
     Dosage: UNK
     Dates: start: 20100123

REACTIONS (7)
  - ALCOHOL INTERACTION [None]
  - AMNESTIC DISORDER [None]
  - CHEST DISCOMFORT [None]
  - FEELING OF RELAXATION [None]
  - PSYCHOTIC DISORDER [None]
  - SUICIDAL IDEATION [None]
  - VIOLENCE-RELATED SYMPTOM [None]
